FAERS Safety Report 15591326 (Version 1)
Quarter: 2018Q4

REPORT INFORMATION
  Report Type: Spontaneous
  Country: US (occurrence: US)
  Receive Date: 20181106
  Receipt Date: 20181106
  Transmission Date: 20190205
  Serious: Yes (Hospitalization)
  Sender: FDA-Public Use
  Company Number: None

PATIENT
  Age: 24 Year
  Sex: Female
  Weight: 60.3 kg

DRUGS (1)
  1. VANCOMYCIN [Suspect]
     Active Substance: VANCOMYCIN
     Route: 041

REACTIONS (6)
  - Pruritus [None]
  - Throat irritation [None]
  - Flushing [None]
  - Infusion related reaction [None]
  - Palpitations [None]
  - Erythema [None]

NARRATIVE: CASE EVENT DATE: 20181105
